FAERS Safety Report 4386073-3 (Version None)
Quarter: 2004Q2

REPORT INFORMATION
  Report Type: 
  Country: None (occurrence: None)
  Receive Date: 20040610
  Receipt Date: 20040105
  Transmission Date: 20050107
  Serious: Yes (Hospitalization)
  Sender: FDA-Public Use
  Company Number: 2004AP00051

PATIENT
  Age: 73 Year
  Sex: Male

DRUGS (8)
  1. OMEPRAZOLE [Suspect]
     Indication: DUODENITIS
     Dosage: 20 MG BID PO
     Route: 048
  2. OMEPRAZOLE [Suspect]
     Indication: GASTRITIS EROSIVE
     Dosage: 20 MG BID PO
     Route: 048
  3. QUINAPRIL HCL [Concomitant]
  4. COLCHICINE [Concomitant]
  5. DIGOXIN [Concomitant]
  6. CARVEDILOL [Concomitant]
  7. FUROSEMIDE [Concomitant]
  8. IRON [Concomitant]

REACTIONS (1)
  - NEPHRITIS INTERSTITIAL [None]
